FAERS Safety Report 21953302 (Version 1)
Quarter: 2023Q1

REPORT INFORMATION
  Report Type: Other
  Country: KZ (occurrence: KZ)
  Receive Date: 20230204
  Receipt Date: 20230204
  Transmission Date: 20230418
  Serious: Yes (Other)
  Sender: FDA-Public Use
  Company Number: KZ-MACLEODS PHARMA EU LTD-MAC2023039560

PATIENT

DRUGS (4)
  1. PYRAZINAMIDE [Suspect]
     Active Substance: PYRAZINAMIDE
     Indication: Pulmonary tuberculosis
     Dosage: 500 MILLIGRAM
     Route: 065
  2. Levozin [Concomitant]
     Indication: Schizophrenia
     Dosage: (NOBEL ALMATY PHARMACEUTICAL FACTORY)
     Route: 065
  3. LINEZOLID [Concomitant]
     Active Substance: LINEZOLID
     Indication: Schizophrenia
     Dosage: UNK ( ABDI IBRAHIM GLOBAL PHARM)
     Route: 065
  4. CLOFAZIMINE [Concomitant]
     Active Substance: CLOFAZIMINE
     Indication: Schizophrenia
     Dosage: 100 MILLIGRAM
     Route: 065

REACTIONS (1)
  - Hepatitis toxic [Not Recovered/Not Resolved]
